FAERS Safety Report 6165493-0 (Version None)
Quarter: 2009Q2

REPORT INFORMATION
  Report Type: 
  Country: None (occurrence: None)
  Receive Date: 20090421
  Receipt Date: 20090421
  Transmission Date: 20091009
  Serious: Yes (Disabling, Other)
  Sender: FDA-Public Use
  Company Number: None

PATIENT
  Sex: Female
  Weight: 81.6475 kg

DRUGS (1)
  1. NUVARING [Suspect]
     Indication: CONTRACEPTION
     Dates: start: 20061001, end: 20080601

REACTIONS (7)
  - ACNE [None]
  - AMENORRHOEA [None]
  - ANXIETY [None]
  - IMPAIRED WORK ABILITY [None]
  - INFERTILITY FEMALE [None]
  - PANIC ATTACK [None]
  - WEIGHT INCREASED [None]
